FAERS Safety Report 21949403 (Version 1)
Quarter: 2023Q1

REPORT INFORMATION
  Report Type: Spontaneous
  Country: US (occurrence: None)
  Receive Date: 20230202
  Receipt Date: 20230202
  Transmission Date: 20230417
  Serious: Yes (Hospitalization)
  Sender: FDA-Public Use
  Company Number: None

PATIENT
  Sex: Male

DRUGS (8)
  1. ENVARSUS XR [Suspect]
     Active Substance: TACROLIMUS
  2. ASPIRIN [Concomitant]
     Active Substance: ASPIRIN
  3. LASIX TAB [Concomitant]
  4. LEVOTHYROXIN TAB [Concomitant]
  5. LOSARTAN POTASSIUM [Concomitant]
     Active Substance: LOSARTAN POTASSIUM
  6. MIRALAX POW 3350 NF [Concomitant]
  7. MYCOPHENOLATE CAP [Concomitant]
  8. MYCOPHENOLIC [Concomitant]

REACTIONS (2)
  - Obstruction [None]
  - Cardiac disorder [None]
